FAERS Safety Report 19609523 (Version 2)
Quarter: 2021Q3

REPORT INFORMATION
  Report Type: Spontaneous
  Country: NL (occurrence: NL)
  Receive Date: 20210726
  Receipt Date: 20210730
  Transmission Date: 20211014
  Serious: Yes (Death)
  Sender: FDA-Public Use
  Company Number: NL-ACCORD-232574

PATIENT
  Age: 65 Year
  Sex: Female
  Weight: 58 kg

DRUGS (7)
  1. PROPRANOLOL [Concomitant]
     Active Substance: PROPRANOLOL HYDROCHLORIDE
     Dosage: CAPSULE MGA 80MG MODIFIED?RELEASE CAPSULE, 80 MG (MILLIGRAMS)
  2. SIMVASTATIN. [Concomitant]
     Active Substance: SIMVASTATIN
     Dosage: FILM?COATED TABLET, 10 MG (MILLIGRAM)
  3. COLECALCIFEROL [Concomitant]
     Active Substance: CHOLECALCIFEROL
     Dosage: CAPSULE, 5600 UNITS
  4. FINGOLIMOD/FINGOLIMOD HYDROCHLORIDE [Suspect]
     Active Substance: FINGOLIMOD HYDROCHLORIDE
     Indication: PRODUCT USED FOR UNKNOWN INDICATION
     Dosage: CAPSULE 0.5MG
     Dates: start: 20131001
  5. ASTRAZENECA COVID?19 VACCINE [Suspect]
     Active Substance: AZD-1222
     Indication: COVID-19 IMMUNISATION
     Dosage: INJECTION SOLUTION
     Dates: start: 20210615
  6. OXYBUTYNIN. [Concomitant]
     Active Substance: OXYBUTYNIN CHLORIDE
     Dosage: SYRUP 1 MG/M
  7. PRIMIDONE. [Concomitant]
     Active Substance: PRIMIDONE
     Dosage: CAPSULE 62.5 MG 250 MG

REACTIONS (3)
  - Dyspnoea [Recovered/Resolved]
  - Cardiac death [Fatal]
  - Headache [Unknown]

NARRATIVE: CASE EVENT DATE: 20210616
